FAERS Safety Report 20328597 (Version 1)
Quarter: 2022Q1

REPORT INFORMATION
  Report Type: Spontaneous
  Country: ES (occurrence: ES)
  Receive Date: 20220112
  Receipt Date: 20220112
  Transmission Date: 20220423
  Serious: Yes (Hospitalization, Other)
  Sender: FDA-Public Use
  Company Number: None

PATIENT
  Age: 86 Year
  Sex: Female

DRUGS (1)
  1. OLMESARTAN MEDOXOMIL [Suspect]
     Active Substance: OLMESARTAN MEDOXOMIL
     Indication: Hypertension
     Dosage: 40 MILLIGRAM
     Route: 048

REACTIONS (6)
  - Diarrhoea [Recovered/Resolved]
  - Gastrointestinal disorder [Recovering/Resolving]
  - Colitis [Recovering/Resolving]
  - Metabolic acidosis [Recovering/Resolving]
  - Enteritis [Recovering/Resolving]
  - Prerenal failure [Recovering/Resolving]
